FAERS Safety Report 8888768 (Version 2)
Quarter: 2013Q4

REPORT INFORMATION
  Report Type: Spontaneous
  Country: CA (occurrence: CA)
  Receive Date: 20121106
  Receipt Date: 20131118
  Transmission Date: 20140711
  Serious: Yes (Hospitalization)
  Sender: FDA-Public Use
  Company Number: CA-AMGEN-CANSP2012044997

PATIENT
  Age: 56 Year
  Sex: Female

DRUGS (6)
  1. NEULASTA [Suspect]
     Indication: FEBRILE NEUTROPENIA
     Dosage: 10 UNIT, UNK, SOLUTION SUBCUTANEOUS
     Route: 051
  2. PREDNISONE [Concomitant]
     Dosage: UNK
  3. PENTALOC [Concomitant]
     Dosage: UNK
  4. GAVISCON                           /00237601/ [Concomitant]
     Dosage: UNK
  5. MORPHINE [Concomitant]
     Dosage: UNK
  6. LORAZEPAM [Concomitant]
     Dosage: UNK

REACTIONS (2)
  - Neutropenia [Recovered/Resolved]
  - Urinary tract infection [Recovered/Resolved]
